FAERS Safety Report 8276646-X (Version None)
Quarter: 2012Q2

REPORT INFORMATION
  Report Type: 
  Country: None (occurrence: None)
  Receive Date: 20120412
  Receipt Date: 20120410
  Transmission Date: 20120825
  Serious: Yes (Life-Threatening, Other)
  Sender: FDA-Public Use
  Company Number: PHHY2012CA029140

PATIENT
  Sex: Female

DRUGS (2)
  1. ZOLEDRONOC ACID [Suspect]
     Indication: OSTEOPOROSIS
     Dosage: 5 MG, ONCE PER YEAR
     Route: 042
     Dates: start: 20100427
  2. ZOLEDRONOC ACID [Suspect]
     Dosage: 5 MG, ONCE PER YEAR
     Route: 042
     Dates: start: 20110516

REACTIONS (6)
  - BACK PAIN [None]
  - CONTUSION [None]
  - MYOCARDIAL INFARCTION [None]
  - LIMB DISCOMFORT [None]
  - PAIN IN EXTREMITY [None]
  - PAIN [None]
